FAERS Safety Report 8429889-6 (Version None)
Quarter: 2012Q2

REPORT INFORMATION
  Report Type: 
  Country: None (occurrence: None)
  Receive Date: 20120612
  Receipt Date: 20120606
  Transmission Date: 20120825
  Serious: No
  Sender: FDA-Public Use
  Company Number: US-ASTRAZENECA-2010SE22198

PATIENT
  Age: 50 Year
  Sex: Female

DRUGS (5)
  1. SEROQUEL [Suspect]
     Route: 048
  2. SEROQUEL [Suspect]
     Route: 048
  3. SEROQUEL [Suspect]
     Route: 048
  4. SEROQUEL [Suspect]
     Route: 048
  5. SEROQUEL [Suspect]
     Route: 048

REACTIONS (19)
  - SLEEP TERROR [None]
  - HYPERSENSITIVITY [None]
  - MALAISE [None]
  - CHEST PAIN [None]
  - BRUXISM [None]
  - DIZZINESS [None]
  - INSOMNIA [None]
  - LETHARGY [None]
  - NEGATIVE THOUGHTS [None]
  - WITHDRAWAL SYNDROME [None]
  - MUSCLE SPASMS [None]
  - NIGHTMARE [None]
  - DRUG INEFFECTIVE [None]
  - ABNORMAL BEHAVIOUR [None]
  - FATIGUE [None]
  - BLOOD CHOLESTEROL INCREASED [None]
  - WEIGHT INCREASED [None]
  - INTENTIONAL DRUG MISUSE [None]
  - DRUG DOSE OMISSION [None]
